FAERS Safety Report 5181163-X (Version None)
Quarter: 2006Q4

REPORT INFORMATION
  Report Type: 
  Country: None (occurrence: None)
  Receive Date: 20061212
  Receipt Date: 20061203
  Transmission Date: 20070319
  Serious: Yes (Hospitalization, Other)
  Sender: FDA-Public Use
  Company Number: 2005171162

PATIENT
  Age: 42 Year
  Sex: Male
  Weight: 87.0906 kg

DRUGS (9)
  1. VIAGRA [Suspect]
     Dates: start: 19970101
  2. DILANTIN [Suspect]
     Indication: CONVULSION
     Dosage: 300 MG (300 MG)
     Dates: start: 19970101
  3. PHENYTOIN [Suspect]
     Indication: CONVULSION
  4. PLETAL (CILOSTAZOL) [Concomitant]
  5. NEXIUM [Concomitant]
  6. ACETAMINOPHEN W/ PROPOXYPHENE HCL [Concomitant]
  7. NEURONTIN [Concomitant]
  8. AVANDAMET [Concomitant]
  9. ALL OTHER THERAPEUTIC PRODUCTS (ALL OTHER THERAPEUTIC PRODUCTS) [Concomitant]

REACTIONS (7)
  - BODY HEIGHT DECREASED [None]
  - DRUG INEFFECTIVE [None]
  - MEMORY IMPAIRMENT [None]
  - PENILE SIZE REDUCED [None]
  - RHEUMATOID ARTHRITIS [None]
  - ROAD TRAFFIC ACCIDENT [None]
  - SPINAL FRACTURE [None]
